FAERS Safety Report 10220333 (Version 2)
Quarter: 2014Q4

REPORT INFORMATION
  Report Type: Spontaneous
  Country: US (occurrence: US)
  Receive Date: 20140606
  Receipt Date: 20141202
  Transmission Date: 20150528
  Serious: No
  Sender: FDA-Public Use
  Company Number: US-009507513-1406USA003197

PATIENT
  Sex: Female
  Weight: 53.51 kg

DRUGS (1)
  1. NEXPLANON [Suspect]
     Active Substance: ETONOGESTREL
     Indication: CONTRACEPTION
     Dosage: 1 ROD, 1 STANDARD PACKAGE PREFLAPP OF 1 (IN LEFT ARM)
     Route: 059
     Dates: start: 20130514, end: 20140915

REACTIONS (4)
  - Device kink [Recovered/Resolved]
  - Menstruation irregular [Unknown]
  - Metrorrhagia [Unknown]
  - Product quality issue [Unknown]
